FAERS Safety Report 9908548 (Version 7)
Quarter: 2014Q2

REPORT INFORMATION
  Report Type: Report from Study
  Country: FR (occurrence: FR)
  Receive Date: 20140219
  Receipt Date: 20140520
  Transmission Date: 20141212
  Serious: Yes (Hospitalization)
  Sender: FDA-Public Use
  Company Number: FR-ROCHE-1336049

PATIENT
  Age: 58 Year
  Sex: Female
  Weight: 66 kg

DRUGS (26)
  1. TRASTUZUMAB EMTANSINE [Suspect]
     Indication: HER-2 POSITIVE BREAST CANCER
     Dosage: MOST RECENT DOSE RECEIVED PRIOR TO ONSET OF SAE: 198 MG ON 14/JAN/2014
     Route: 042
     Dates: start: 20130315
  2. TRASTUZUMAB [Suspect]
     Indication: HER-2 POSITIVE BREAST CANCER
     Dosage: LAST DOSE: 388.5MG
     Route: 042
     Dates: start: 20120404, end: 20120628
  3. CYCLOPHOSPHAMIDE [Suspect]
     Indication: HER-2 POSITIVE BREAST CANCER
     Route: 048
     Dates: end: 20120621
  4. PROCORALAN [Concomitant]
     Indication: TACHYCARDIA
  5. EFFEXOR [Concomitant]
     Indication: DEPRESSION
  6. TRILEPTAL [Concomitant]
     Indication: POLYNEUROPATHY
     Route: 065
     Dates: start: 20120531
  7. UROMITEXAN [Concomitant]
     Indication: HAEMATURIA
     Route: 065
     Dates: start: 20120628
  8. SEROPLEX [Concomitant]
     Indication: DEPRESSION
  9. KARDEGIC [Concomitant]
     Indication: THROMBOSIS
     Route: 065
     Dates: start: 201303
  10. KARDEGIC [Concomitant]
     Indication: PROPHYLAXIS
  11. ACTISKENAN [Concomitant]
     Indication: PAIN
     Route: 065
     Dates: start: 201303
  12. NEURONTIN (FRANCE) [Concomitant]
     Indication: NEURALGIA
     Route: 065
     Dates: start: 20130802, end: 201402
  13. POLARAMINE [Concomitant]
     Indication: PREMEDICATION
     Route: 065
     Dates: start: 20131010, end: 20140114
  14. AZANTAC [Concomitant]
     Indication: PREMEDICATION
     Route: 065
     Dates: start: 20131010, end: 20140114
  15. DEXAMETHASONE [Concomitant]
     Indication: PREMEDICATION
     Route: 065
     Dates: start: 20131010, end: 20140114
  16. ZOPHREN [Concomitant]
     Indication: PREMEDICATION
     Route: 065
     Dates: start: 20130517, end: 20140114
  17. VENOFER (FRANCE) [Concomitant]
     Indication: BLOOD IRON
     Route: 065
     Dates: start: 20131108, end: 201401
  18. IXPRIM [Concomitant]
     Indication: NEURALGIA
     Route: 065
     Dates: start: 20131029, end: 201311
  19. INIPOMP [Concomitant]
     Indication: ABDOMINAL PAIN UPPER
     Route: 065
     Dates: start: 201308, end: 201401
  20. CHIBRO-CADRON [Concomitant]
     Indication: CONJUNCTIVITIS
     Route: 065
     Dates: start: 201307, end: 201308
  21. XGEVA [Concomitant]
     Indication: METASTASES TO BONE
     Route: 065
     Dates: start: 20130404
  22. NEURONTIN (FRANCE) [Concomitant]
     Indication: NEURALGIA
     Route: 065
     Dates: start: 20130802, end: 201402
  23. DOXYCYCLINE [Concomitant]
     Indication: OSTEONECROSIS OF JAW
     Route: 065
     Dates: start: 20130901, end: 201402
  24. SKENAN [Concomitant]
     Indication: MUSCULOSKELETAL CHEST PAIN
     Route: 065
     Dates: start: 201310
  25. NITROFURANTOIN [Concomitant]
     Indication: URINARY TRACT INFECTION
     Route: 065
     Dates: start: 20131126, end: 201312
  26. HYDROXYZINE HYDROCHLORIDE [Concomitant]
     Indication: PROPHYLAXIS
     Route: 065
     Dates: start: 20140125, end: 201402

REACTIONS (1)
  - Pneumonia [Recovered/Resolved with Sequelae]
